FAERS Safety Report 24078953 (Version 1)
Quarter: 2024Q3

REPORT INFORMATION
  Report Type: Report from Study
  Country: US (occurrence: US)
  Receive Date: 20240711
  Receipt Date: 20240711
  Transmission Date: 20241016
  Serious: Yes (Hospitalization, Other)
  Sender: GILEAD
  Company Number: US-GILEAD-2024-0679796

PATIENT
  Age: 36 Year
  Sex: Female

DRUGS (10)
  1. AZTREONAM LYSINE [Suspect]
     Active Substance: AZTREONAM LYSINE
     Indication: Cystic fibrosis
     Dosage: 75 MG, TID, VIA NEBULIZER EVERY MORNING, AT NOON, AND BEFORE BEDTIME. FOR 28 DAYS
     Route: 055
     Dates: start: 20201204
  2. ALBUTEROL [Concomitant]
     Active Substance: ALBUTEROL
  3. ASPIRIN [Concomitant]
     Active Substance: ASPIRIN
  4. DULERA [Concomitant]
     Active Substance: FORMOTEROL FUMARATE DIHYDRATE\MOMETASONE FUROATE
  5. FERROUS SULFATE [Concomitant]
     Active Substance: FERROUS SULFATE
  6. FORMOTEROL [Concomitant]
     Active Substance: FORMOTEROL
  7. MVW COMPLETE FORMULATION CHEWABLES [Concomitant]
  8. PULMOZYME [Concomitant]
     Active Substance: DORNASE ALFA
  9. SPIRIVA [Concomitant]
     Active Substance: TIOTROPIUM BROMIDE MONOHYDRATE
  10. VITAMIN D3 [Concomitant]
     Active Substance: CHOLECALCIFEROL

REACTIONS (3)
  - Cystic fibrosis respiratory infection suppression [Unknown]
  - Productive cough [Not Recovered/Not Resolved]
  - Dyspnoea [Unknown]
